FAERS Safety Report 20375269 (Version 1)
Quarter: 2022Q1

REPORT INFORMATION
  Report Type: Spontaneous
  Country: US (occurrence: None)
  Receive Date: 20220124
  Receipt Date: 20220124
  Transmission Date: 20220424
  Serious: Yes (Hospitalization)
  Sender: FDA-Public Use
  Company Number: None

PATIENT
  Age: 58 Year
  Sex: Female
  Weight: 84.15 kg

DRUGS (3)
  1. CEFEPIME [Suspect]
     Active Substance: CEFEPIME HYDROCHLORIDE
     Indication: Spinal cord abscess
     Dosage: FREQUENCY : 3 TIMES A DAY;?
     Route: 040
     Dates: start: 20220116, end: 20220124
  2. CEFEPIME [Suspect]
     Active Substance: CEFEPIME HYDROCHLORIDE
     Indication: Granuloma
  3. VANCOMYCIN [Concomitant]
     Active Substance: VANCOMYCIN
     Dates: start: 20220116, end: 20220124

REACTIONS (3)
  - Pallor [None]
  - Tremor [None]
  - Renal failure [None]

NARRATIVE: CASE EVENT DATE: 20220124
